FAERS Safety Report 8418159-8 (Version None)
Quarter: 2012Q2

REPORT INFORMATION
  Report Type: 
  Country: None (occurrence: None)
  Receive Date: 20120607
  Receipt Date: 20120530
  Transmission Date: 20120825
  Serious: Yes (Hospitalization)
  Sender: FDA-Public Use
  Company Number: US-BAYER-2011-070592

PATIENT
  Age: 18 Year
  Sex: Female
  Weight: 95 kg

DRUGS (8)
  1. AZITHROMYCIN [Concomitant]
     Dosage: 250 MG, UNK
     Route: 048
     Dates: start: 20070825
  2. XOPENEX [Concomitant]
     Dosage: 45 MCG
     Route: 045
  3. PAXIL CR [Concomitant]
     Indication: ANXIETY
     Dosage: UNK
     Dates: start: 20070717, end: 20070820
  4. YAZ [Suspect]
     Indication: CONTRACEPTION
     Dosage: UNK
     Dates: start: 20070801, end: 20071001
  5. PAXIL CR [Concomitant]
     Indication: DEPRESSION
     Dosage: 12.5 TO 25 MG DAILY
     Route: 048
     Dates: start: 20020101, end: 20071101
  6. METHYLPREDNISOLONE [Concomitant]
     Dosage: 4 MG, UNK
     Route: 048
     Dates: start: 20070825
  7. YAZ [Suspect]
     Indication: PREMENSTRUAL SYNDROME
  8. YASMIN [Suspect]

REACTIONS (8)
  - ANXIETY [None]
  - EMOTIONAL DISTRESS [None]
  - NON-CARDIAC CHEST PAIN [None]
  - DEPRESSION [None]
  - PULMONARY EMBOLISM [None]
  - DYSPNOEA [None]
  - ANHEDONIA [None]
  - INJURY [None]
